FAERS Safety Report 11375020 (Version 1)
Quarter: 2015Q3

REPORT INFORMATION
  Report Type: Spontaneous
  Country: IN (occurrence: IN)
  Receive Date: 20150813
  Receipt Date: 20150813
  Transmission Date: 20151125
  Serious: Yes (Other)
  Sender: FDA-Public Use
  Company Number: IN-SUN PHARMACEUTICAL INDUSTRIES LTD-2015R1-101242

PATIENT
  Age: 53 Year
  Sex: Female

DRUGS (6)
  1. POTASIUM IODIDE [Suspect]
     Active Substance: POTASSIUM IODIDE
     Indication: CUTANEOUS SPOROTRICHOSIS
     Dosage: UNK UNK, TID
     Route: 048
  2. RAMIPRIL. [Concomitant]
     Active Substance: RAMIPRIL
     Indication: HYPERTENSION
     Dosage: 5 MG, DAILY
     Route: 065
  3. METFORMIN HYDROCHLORIDE. [Interacting]
     Active Substance: METFORMIN HYDROCHLORIDE
     Indication: DIABETES MELLITUS
     Dosage: 500 MG, DAILY
     Route: 065
  4. METHOTREXATE [Concomitant]
     Active Substance: METHOTREXATE
     Indication: RHEUMATOID ARTHRITIS
     Dosage: 7.5 MG, 1/WEEK
     Route: 065
  5. ITRACONAZOLE. [Interacting]
     Active Substance: ITRACONAZOLE
     Indication: CUTANEOUS SPOROTRICHOSIS
     Dosage: 100 MG, BID
     Route: 065
  6. GLIMEPIRIDE. [Interacting]
     Active Substance: GLIMEPIRIDE
     Indication: DIABETES MELLITUS
     Dosage: 2 MG, DAILY
     Route: 065

REACTIONS (6)
  - Influenza like illness [None]
  - Pyrexia [Unknown]
  - Vomiting [Unknown]
  - Malaise [Unknown]
  - Drug interaction [Unknown]
  - Drug intolerance [Unknown]
